FAERS Safety Report 8182274-7 (Version None)
Quarter: 2012Q1

REPORT INFORMATION
  Report Type: 
  Country: None (occurrence: None)
  Receive Date: 20120302
  Receipt Date: 20120228
  Transmission Date: 20120608
  Serious: Yes (Death, Hospitalization, Other)
  Sender: FDA-Public Use
  Company Number: PHHY2012ES017337

PATIENT
  Age: 66 Year
  Sex: Male

DRUGS (5)
  1. TACROLIMUS [Interacting]
     Indication: RENAL TRANSPLANT
     Dosage: 2 MG, UNK
     Route: 048
     Dates: start: 20100201, end: 20101122
  2. MYFORTIC [Suspect]
     Indication: RENAL TRANSPLANT
     Dosage: 360 MG, UNK
     Route: 048
     Dates: start: 20080201, end: 20101122
  3. PREDNISOLONE [Interacting]
     Indication: RENAL TRANSPLANT
     Dosage: 5 MG, UNK
     Route: 048
  4. CLOPIDOGREL [Interacting]
     Indication: PROPHYLAXIS
     Dosage: 75 MG, UNK
     Route: 048
     Dates: end: 20101021
  5. ASPIRIN [Interacting]
     Indication: PROPHYLAXIS
     Dosage: 150 MG, UNK
     Route: 048
     Dates: start: 20100301, end: 20101021

REACTIONS (13)
  - MALAISE [None]
  - CHEST PAIN [None]
  - RESPIRATORY ACIDOSIS [None]
  - BLOOD UREA INCREASED [None]
  - BLOOD CREATININE INCREASED [None]
  - WHITE BLOOD CELL COUNT INCREASED [None]
  - GASTRIC PERFORATION [None]
  - DEATH [None]
  - PAIN [None]
  - GASTRIC HAEMORRHAGE [None]
  - DRUG INTERACTION [None]
  - MELAENA [None]
  - HAEMATEMESIS [None]
